FAERS Safety Report 6037641-4 (Version None)
Quarter: 2009Q1

REPORT INFORMATION
  Report Type: 
  Country: None (occurrence: None)
  Receive Date: 20090114
  Receipt Date: 20090113
  Transmission Date: 20090719
  Serious: No
  Sender: FDA-Public Use
  Company Number: US-B.I. PHARMACEUTICALS,INC./RIDGEFIELD-2008-BP-19007BP

PATIENT
  Sex: Male

DRUGS (8)
  1. SPIRIVA [Suspect]
     Indication: CHRONIC OBSTRUCTIVE PULMONARY DISEASE
     Dosage: 18MCG
  2. SPIRIVA [Suspect]
     Indication: EMPHYSEMA
  3. ADVAIR DISKUS 100/50 [Concomitant]
     Indication: DYSPNOEA
  4. FLUCONAZOLE [Concomitant]
  5. FLOMAX [Concomitant]
     Dosage: .4MG
  6. FUROSEMIDE [Concomitant]
  7. NYSTATIN [Concomitant]
     Route: 048
  8. PROVENTIL [Concomitant]

REACTIONS (1)
  - CONSTIPATION [None]
